FAERS Safety Report 18867980 (Version 1)
Quarter: 2021Q1

REPORT INFORMATION
  Report Type: Spontaneous
  Country: FR (occurrence: FR)
  Receive Date: 20210209
  Receipt Date: 20210209
  Transmission Date: 20210420
  Serious: Yes (Other)
  Sender: FDA-Public Use
  Company Number: FR-PFIZER INC-2021097906

PATIENT
  Age: 77 Year
  Sex: Male
  Weight: 73 kg

DRUGS (2)
  1. KEYTRUDA [Suspect]
     Active Substance: PEMBROLIZUMAB
     Indication: NEOPLASM MALIGNANT
     Dosage: 200 MG, 1X/DAY
     Route: 042
     Dates: start: 20201211, end: 20201211
  2. INLYTA [Suspect]
     Active Substance: AXITINIB
     Indication: NEOPLASM MALIGNANT
     Dosage: 8 MG, 1X/DAY
     Route: 048
     Dates: start: 20201211, end: 20201231

REACTIONS (3)
  - Decreased appetite [Recovered/Resolved]
  - Hepatocellular injury [Recovering/Resolving]
  - Asthenia [Recovering/Resolving]

NARRATIVE: CASE EVENT DATE: 20210104
